FAERS Safety Report 21009680 (Version 1)
Quarter: 2022Q2

REPORT INFORMATION
  Report Type: Spontaneous
  Country: US (occurrence: None)
  Receive Date: 20220626
  Receipt Date: 20220626
  Transmission Date: 20220721
  Serious: No
  Sender: FDA-Public Use
  Company Number: None

PATIENT
  Age: 21 Year
  Sex: Female

DRUGS (4)
  1. ELURYNG [Suspect]
     Active Substance: ETHINYL ESTRADIOL\ETONOGESTREL
     Indication: Contraception
     Dosage: OTHER QUANTITY : 1 1 RING PERE MONTH;?OTHER FREQUENCY : INSERTED AND STAYS;?
     Route: 067
     Dates: start: 20220301, end: 20220609
  2. ZYRTEC [Concomitant]
     Active Substance: CETIRIZINE HYDROCHLORIDE
  3. VITAMINS [Concomitant]
     Active Substance: VITAMINS
  4. vitamind d [Concomitant]

REACTIONS (3)
  - Product substitution issue [None]
  - Vulvovaginal pruritus [None]
  - Weight increased [None]

NARRATIVE: CASE EVENT DATE: 20220301
